FAERS Safety Report 20222240 (Version 1)
Quarter: 2021Q4

REPORT INFORMATION
  Report Type: Spontaneous
  Country: IT (occurrence: IT)
  Receive Date: 20211223
  Receipt Date: 20211223
  Transmission Date: 20220304
  Serious: Yes (Hospitalization)
  Sender: FDA-Public Use
  Company Number: IT-MYLANLABS-2021M1095412

PATIENT
  Age: 64 Year
  Sex: Male

DRUGS (4)
  1. SUNITINIB [Suspect]
     Active Substance: SUNITINIB
     Indication: Renal cell carcinoma
     Dosage: 50 MILLIGRAM, QD, 4 WEEKS ON/2 WEEKS OFF
     Route: 065
     Dates: start: 201602
  2. SUNITINIB [Suspect]
     Active Substance: SUNITINIB
     Dosage: 37.5 MILLIGRAM
     Route: 065
  3. SUNITINIB [Suspect]
     Active Substance: SUNITINIB
     Dosage: 25 MILLIGRAM
     Route: 065
  4. ZOLEDRONIC ACID [Concomitant]
     Active Substance: ZOLEDRONIC ACID
     Indication: Product used for unknown indication
     Dosage: UNK
     Route: 065
     Dates: start: 201602

REACTIONS (3)
  - Asthenia [Unknown]
  - Skin toxicity [Unknown]
  - Mucosal inflammation [Unknown]

NARRATIVE: CASE EVENT DATE: 20191001
